FAERS Safety Report 7470823-3 (Version None)
Quarter: 2011Q2

REPORT INFORMATION
  Report Type: 
  Country: None (occurrence: None)
  Receive Date: 20110510
  Receipt Date: 20110505
  Transmission Date: 20111010
  Serious: Yes (Hospitalization)
  Sender: FDA-Public Use
  Company Number: SE-PFIZER INC-2011097489

PATIENT
  Age: 81 Year
  Sex: Male
  Weight: 77 kg

DRUGS (9)
  1. EPLERENONE [Suspect]
     Dosage: 50 MG DAILY
     Route: 048
     Dates: start: 20101009
  2. WARFARIN [Concomitant]
     Dosage: UNK
     Route: 048
     Dates: start: 20090715
  3. ATORVASTATIN [Concomitant]
     Dosage: UNK
     Route: 048
     Dates: start: 20100913
  4. LACTULOSE [Concomitant]
     Dosage: UNK
     Dates: start: 20090714, end: 20110404
  5. AMLODIPINE [Concomitant]
     Dosage: UNK
     Route: 048
     Dates: start: 20090428
  6. METOPROLOL SUCCINATE [Concomitant]
     Dosage: UNK
     Route: 048
     Dates: start: 20071221
  7. FUROSEMIDE [Concomitant]
     Dosage: UNK
     Route: 048
     Dates: start: 20100505
  8. EPLERENONE [Suspect]
     Indication: CARDIAC FAILURE CHRONIC
     Dosage: 25 MG, DAILY
     Route: 048
     Dates: start: 20100908, end: 20101007
  9. ENALAPRIL [Concomitant]
     Dosage: UNK
     Route: 048
     Dates: start: 20071204

REACTIONS (1)
  - ANAL FISSURE [None]
